FAERS Safety Report 5511295-5 (Version None)
Quarter: 2007Q4

REPORT INFORMATION
  Report Type: 
  Country: None (occurrence: None)
  Receive Date: 20071109
  Receipt Date: 20070802
  Transmission Date: 20080405
  Serious: No
  Sender: FDA-Public Use
  Company Number: A0667893A

PATIENT
  Age: 60 Year
  Sex: Female

DRUGS (6)
  1. ALTABAX [Suspect]
     Indication: WOUND DRAINAGE
     Route: 061
     Dates: start: 20070725
  2. AMBIEN [Concomitant]
  3. EFFEXOR [Concomitant]
  4. MOTRIN [Concomitant]
  5. FOSAMAX [Concomitant]
  6. HYDROCODONE BITARTRATE [Concomitant]

REACTIONS (1)
  - APPLICATION SITE PAIN [None]
